FAERS Safety Report 4766308-5 (Version None)
Quarter: 2005Q3

REPORT INFORMATION
  Report Type: 
  Country: None (occurrence: None)
  Receive Date: 20050909
  Receipt Date: 20050812
  Transmission Date: 20060218
  Serious: Yes (Hospitalization)
  Sender: FDA-Public Use
  Company Number: 6016636

PATIENT
  Age: 65 Year
  Sex: Female

DRUGS (13)
  1. INDAPAMIDE [Suspect]
     Indication: ESSENTIAL HYPERTENSION
     Dosage: 2,5 MG (2,5 ORAL
     Route: 048
     Dates: end: 20001122
  2. FELDENE [Suspect]
     Indication: ARTHRITIS
     Dates: start: 20001016, end: 20001122
  3. CELEBREX [Suspect]
     Indication: ARTHRITIS
     Dosage: 400 MG (400 MG, 1 D) ORAL
     Route: 048
     Dates: start: 20001101, end: 20001122
  4. LACTULOSE [Suspect]
     Dosage: 30 ML (30 ML, 1 D) ORAL
     Route: 048
     Dates: end: 20001122
  5. ENALAPRIL MALEATE [Suspect]
     Indication: ESSENTIAL HYPERTENSION
     Dosage: 40 MG (40 MG, 1 D)
     Dates: end: 20001122
  6. CARDIZEM [Suspect]
     Indication: ESSENTIAL HYPERTENSION
     Dosage: 240 MG (240 MG, 1 D) ORAL
     Route: 048
     Dates: end: 20001122
  7. DISPIRIN (TABLET) (ACETYLSALICYLIC ACID) [Suspect]
     Dosage: 100 MG (100 MG, 1 D) ORAL
     Route: 048
     Dates: end: 20001122
  8. LIPOBAY (CERIVASTATIN SODIUM) [Suspect]
     Indication: METABOLIC DISORDER
     Dosage: 300 MG (300 MG, 1 D)
     Dates: end: 20001122
  9. ZYLOPRIM [Suspect]
     Indication: GOUT
     Dosage: 200 MG (200 MG, 1 D)
     Dates: end: 20001122
  10. DISPROSONE (CREAM) (BETAMETHASONE) [Concomitant]
  11. LOSEC (OMEPRAZOLE) [Concomitant]
  12. NORMISON (TEMAZEPAM) [Concomitant]
  13. OROXINE (LEVOTHYROXINE SODIUM) [Concomitant]

REACTIONS (1)
  - RENAL FAILURE ACUTE [None]
